FAERS Safety Report 5319958-1 (Version None)
Quarter: 2007Q2

REPORT INFORMATION
  Report Type: 
  Country: None (occurrence: None)
  Receive Date: 20070502
  Receipt Date: 20070416
  Transmission Date: 20071010
  Serious: Yes (Other)
  Sender: FDA-Public Use
  Company Number: 8022223

PATIENT
  Age: 16 Year
  Sex: Male
  Weight: 77 kg

DRUGS (3)
  1. KEPPRA [Suspect]
     Indication: EPILEPSY
     Dosage: 750 MG 2/D PO
     Route: 048
     Dates: start: 20061201, end: 20070101
  2. OXCARBACEPIN [Suspect]
     Indication: EPILEPSY
     Dosage: 900 MG 2/D PO
     Route: 048
     Dates: start: 20030901, end: 20070201
  3. LAMOTRIGINE [Concomitant]

REACTIONS (3)
  - ANTI-PLATELET ANTIBODY [None]
  - THROMBOCYTOPENIA [None]
  - URTICARIA [None]
